FAERS Safety Report 12256276 (Version 3)
Quarter: 2016Q2

REPORT INFORMATION
  Report Type: Report from Study
  Country: NL (occurrence: NL)
  Receive Date: 20160412
  Receipt Date: 20160616
  Transmission Date: 20160815
  Serious: Yes (Hospitalization, Other)
  Sender: FDA-Public Use
  Company Number: NL-AMGEN-NLDSL2016044503

PATIENT
  Age: 85 Year
  Sex: Male

DRUGS (1)
  1. XGEVA [Suspect]
     Active Substance: DENOSUMAB
     Indication: PROPHYLAXIS
     Dosage: 120MG (1.70ML), Q4WK
     Route: 058

REACTIONS (4)
  - Hospitalisation [Recovered/Resolved]
  - Pollakiuria [Unknown]
  - Ureteric operation [Unknown]
  - Micturition urgency [Unknown]

NARRATIVE: CASE EVENT DATE: 20150710
